FAERS Safety Report 6108617-3 (Version None)
Quarter: 2009Q1

REPORT INFORMATION
  Report Type: 
  Country: None (occurrence: None)
  Receive Date: 20090305
  Receipt Date: 20090224
  Transmission Date: 20090719
  Serious: Yes (Disabling)
  Sender: FDA-Public Use
  Company Number: OSCN-NO-0902S-0124

PATIENT
  Age: 55 Year
  Sex: Male
  Weight: 86 kg

DRUGS (11)
  1. OMNISCAN [Suspect]
     Indication: DRUG USE FOR UNKNOWN INDICATION
     Dosage: 17.2 ML, SINGLE DOSE, I.V., SINGLE DOSE, I.V.
     Route: 042
     Dates: start: 20020116, end: 20020116
  2. OMNISCAN [Suspect]
     Indication: DRUG USE FOR UNKNOWN INDICATION
     Dosage: 17.2 ML, SINGLE DOSE, I.V., SINGLE DOSE, I.V.
     Route: 042
     Dates: start: 20020507, end: 20020507
  3. OMNISCAN [Suspect]
     Indication: DRUG USE FOR UNKNOWN INDICATION
     Dosage: 17.2 ML, SINGLE DOSE, I.V., SINGLE DOSE, I.V.
     Route: 042
     Dates: start: 20020619, end: 20020619
  4. MEGLUMINE GADOTERATE (DOTAREM) [Concomitant]
  5. METOPROLOL TARTRATE [Concomitant]
  6. ATORVASTATIN [Concomitant]
  7. AMLODIPINE [Concomitant]
  8. SPIRONOLACTONE [Concomitant]
  9. FUROSEMIDE [Concomitant]
  10. CAPTOPRIL [Concomitant]
  11. MOXONIDINE [Concomitant]

REACTIONS (1)
  - NEPHROGENIC SYSTEMIC FIBROSIS [None]
